FAERS Safety Report 4584163-3 (Version None)
Quarter: 2005Q1

REPORT INFORMATION
  Report Type: 
  Country: None (occurrence: None)
  Receive Date: 20050125
  Receipt Date: 20041101
  Transmission Date: 20050727
  Serious: No
  Sender: FDA-Public Use
  Company Number: USA041182894

PATIENT
  Sex: Female

DRUGS (1)
  1. FORTEO [Suspect]
     Dates: start: 20041028

REACTIONS (4)
  - MOVEMENT DISORDER [None]
  - PANIC ATTACK [None]
  - THINKING ABNORMAL [None]
  - TREMOR [None]
